FAERS Safety Report 15124308 (Version 1)
Quarter: 2018Q3

REPORT INFORMATION
  Report Type: Other
  Country: US (occurrence: US)
  Receive Date: 20180710
  Receipt Date: 20180710
  Transmission Date: 20181010
  Serious: No
  Sender: FDA-Public Use
  Company Number: US-AJANTA PHARMA USA INC.-2051623

PATIENT
  Age: 42 Year
  Sex: Male

DRUGS (4)
  1. ABILIFY [Suspect]
     Active Substance: ARIPIPRAZOLE
     Dates: start: 2015, end: 20180327
  2. REXULTI [Suspect]
     Active Substance: BREXPIPRAZOLE
     Dates: start: 20180320, end: 20180327
  3. ARIPIPRAZOLE (ANDA 206174) [Suspect]
     Active Substance: ARIPIPRAZOLE
     Indication: PRODUCT USED FOR UNKNOWN INDICATION
     Dates: end: 20180327
  4. CARBATROL [Concomitant]
     Active Substance: CARBAMAZEPINE

REACTIONS (10)
  - Visual acuity reduced [Unknown]
  - Depression [Unknown]
  - Hyperhidrosis [Unknown]
  - Vision blurred [Not Recovered/Not Resolved]
  - Anxiety [Unknown]
  - Nightmare [Unknown]
  - Fall [Unknown]
  - Oculogyric crisis [Recovering/Resolving]
  - Thinking abnormal [Unknown]
  - Crying [Unknown]

NARRATIVE: CASE EVENT DATE: 2015
